FAERS Safety Report 4618896-7 (Version None)
Quarter: 2005Q1

REPORT INFORMATION
  Report Type: 
  Country: None (occurrence: None)
  Receive Date: 20050323
  Receipt Date: 20050310
  Transmission Date: 20050727
  Serious: Yes (Hospitalization, Other)
  Sender: FDA-Public Use
  Company Number: 2005002523

PATIENT
  Sex: Female

DRUGS (5)
  1. CELEBREX [Suspect]
     Indication: ARTHRALGIA
     Dosage: 200 MG (1 IN 1 D)
     Dates: start: 20020101, end: 20041001
  2. CELEBREX [Suspect]
     Indication: OSTEOARTHRITIS
     Dosage: 200 MG (1 IN 1 D)
     Dates: start: 20020101, end: 20041001
  3. GLUCOSAMINE (GLUCOSAMINE) [Concomitant]
  4. CALCIUM (CALCIUM) [Concomitant]
  5. TOLTERODINE TARTRATE [Concomitant]

REACTIONS (8)
  - ABDOMINAL PAIN [None]
  - ANXIETY [None]
  - BACTERIAL INFECTION [None]
  - DRUG INEFFECTIVE [None]
  - DUODENAL ULCER PERFORATION [None]
  - PAIN [None]
  - PERITONITIS [None]
  - WOUND INFECTION [None]
